FAERS Safety Report 24900740 (Version 5)
Quarter: 2025Q3

REPORT INFORMATION
  Report Type: Spontaneous
  Country: EU (occurrence: EU)
  Receive Date: 20250129
  Receipt Date: 20250711
  Transmission Date: 20251021
  Serious: Yes (Hospitalization, Other)
  Sender: MYLAN
  Company Number: EU-002147023-NVSC2025PL005436

PATIENT
  Age: 39 Year
  Sex: Female

DRUGS (7)
  1. IMATINIB [Suspect]
     Active Substance: IMATINIB
     Indication: Chronic myeloid leukaemia
     Dosage: 400 MILLIGRAM, QD
  2. IMATINIB [Suspect]
     Active Substance: IMATINIB
     Indication: Myeloid leukaemia
  3. DASATINIB [Suspect]
     Active Substance: DASATINIB
     Indication: Chronic myeloid leukaemia
     Dosage: 100 MILLIGRAM, QD
  4. DASATINIB [Suspect]
     Active Substance: DASATINIB
     Indication: Myeloid leukaemia
     Dosage: 50 MILLIGRAM, QD
  5. PREDNISONE [Concomitant]
     Active Substance: PREDNISONE
     Indication: Product used for unknown indication
     Dosage: 20 MILLIGRAM, QD
  6. ALLOPURINOL [Concomitant]
     Active Substance: ALLOPURINOL
  7. HYDROXYUREA [Concomitant]
     Active Substance: HYDROXYUREA

REACTIONS (13)
  - Blood disorder [Unknown]
  - Haemorrhagic diathesis [Recovered/Resolved]
  - Thrombocytopenic purpura [Unknown]
  - Platelet count decreased [Recovered/Resolved]
  - Anaemia [Unknown]
  - Neutropenia [Unknown]
  - Pancytopenia [Unknown]
  - Thrombocytopenia [Unknown]
  - Therapeutic product effect incomplete [Unknown]
  - Drug intolerance [Unknown]
  - Petechiae [Recovered/Resolved]
  - Haemoglobin decreased [Recovered/Resolved]
  - Therapy partial responder [Unknown]

NARRATIVE: CASE EVENT DATE: 20230301
